FAERS Safety Report 11800691 (Version 3)
Quarter: 2015Q4

REPORT INFORMATION
  Report Type: Spontaneous
  Country: DE (occurrence: DE)
  Receive Date: 20151204
  Receipt Date: 20151211
  Transmission Date: 20160305
  Serious: Yes (Death, Hospitalization)
  Sender: FDA-Public Use
  Company Number: DE-ABBVIE-15K-062-1510894-00

PATIENT
  Age: 35 Year
  Sex: Female

DRUGS (1)
  1. HUMIRA [Suspect]
     Active Substance: ADALIMUMAB
     Indication: CROHN^S DISEASE
     Route: 058
     Dates: start: 20141127, end: 20151104

REACTIONS (3)
  - Pneumococcal sepsis [Fatal]
  - Acute respiratory distress syndrome [Fatal]
  - Waterhouse-Friderichsen syndrome [Fatal]

NARRATIVE: CASE EVENT DATE: 201511
